FAERS Safety Report 4471016-4 (Version None)
Quarter: 2004Q4

REPORT INFORMATION
  Report Type: 
  Country: None (occurrence: None)
  Receive Date: 20041011
  Receipt Date: 20040930
  Transmission Date: 20050328
  Serious: Yes (Other)
  Sender: FDA-Public Use
  Company Number: PHBS2004JP13178

PATIENT
  Age: 51 Year
  Sex: Female

DRUGS (5)
  1. NEORAL [Suspect]
     Indication: SYSTEMIC LUPUS ERYTHEMATOSUS
     Dosage: 50 MG/D
     Route: 048
     Dates: start: 20040917, end: 20040927
  2. PREDNISOLONE [Concomitant]
     Dosage: 15 MG/D
     Route: 065
  3. GASTER [Concomitant]
     Dosage: 40 MG/D
     Route: 065
  4. RHEUMATREX [Concomitant]
     Route: 065
  5. FOLIAMIN [Concomitant]
     Dosage: 5 MG/D
     Route: 048

REACTIONS (2)
  - RETINAL DETACHMENT [None]
  - VISUAL ACUITY REDUCED [None]
